FAERS Safety Report 8118251-1 (Version None)
Quarter: 2012Q1

REPORT INFORMATION
  Report Type: 
  Country: None (occurrence: None)
  Receive Date: 20120207
  Receipt Date: 20120202
  Transmission Date: 20120608
  Serious: Yes (Hospitalization)
  Sender: FDA-Public Use
  Company Number: NL-AMGEN-NLDCT2011040713

PATIENT

DRUGS (1)
  1. DENOSUMAB [Suspect]
     Indication: PROSTATE CANCER

REACTIONS (1)
  - HAEMATURIA [None]
